FAERS Safety Report 15689016 (Version 2)
Quarter: 2019Q1

REPORT INFORMATION
  Report Type: Spontaneous
  Country: ES (occurrence: ES)
  Receive Date: 20181205
  Receipt Date: 20190214
  Transmission Date: 20190417
  Serious: Yes (Hospitalization, Other)
  Sender: FDA-Public Use
  Company Number: ES-GLENMARK PHARMACEUTICALS-2018GMK038505

PATIENT
  Age: 57 Year
  Sex: Male

DRUGS (2)
  1. LINEZOLID. [Suspect]
     Active Substance: LINEZOLID
     Indication: OSTEOMYELITIS
     Dosage: 600 MG, BID (EVERY 12 HOURS)
     Route: 065
  2. ERTAPENEM. [Concomitant]
     Active Substance: ERTAPENEM SODIUM
     Indication: OSTEOMYELITIS
     Dosage: UNK
     Route: 065

REACTIONS (6)
  - Off label use [Unknown]
  - Anaemia [Recovering/Resolving]
  - Toxicity to various agents [Unknown]
  - Metabolic acidosis [Not Recovered/Not Resolved]
  - Bone marrow failure [Unknown]
  - Thrombocytopenia [Recovered/Resolved]
